FAERS Safety Report 24953340 (Version 2)
Quarter: 2025Q1

REPORT INFORMATION
  Report Type: Spontaneous
  Country: CA (occurrence: CA)
  Receive Date: 20250211
  Receipt Date: 20250306
  Transmission Date: 20250408
  Serious: Yes (Death, Life-Threatening, Disabling, Other)
  Sender: SANOFI AVENTIS
  Company Number: CA-SA-2025SA034807

PATIENT
  Age: 59 Year
  Sex: Female

DRUGS (1)
  1. KEVZARA [Suspect]
     Active Substance: SARILUMAB
     Indication: Rheumatoid arthritis
     Route: 065

REACTIONS (63)
  - Anti-cyclic citrullinated peptide antibody [Fatal]
  - Abdominal discomfort [Fatal]
  - Adverse drug reaction [Fatal]
  - General physical health deterioration [Fatal]
  - Alopecia [Fatal]
  - Anti-cyclic citrullinated peptide antibody positive [Fatal]
  - Arthralgia [Fatal]
  - Arthropathy [Fatal]
  - Blister [Fatal]
  - Blood cholesterol increased [Fatal]
  - Adverse event [Fatal]
  - Decreased appetite [Fatal]
  - Diarrhoea [Fatal]
  - Wound [Fatal]
  - Duodenal ulcer perforation [Fatal]
  - Fatigue [Fatal]
  - Fibromyalgia [Fatal]
  - Discomfort [Fatal]
  - Glossodynia [Fatal]
  - Hand deformity [Fatal]
  - Headache [Fatal]
  - Helicobacter infection [Fatal]
  - Hepatic enzyme increased [Fatal]
  - Hypercholesterolaemia [Fatal]
  - Hypersensitivity [Fatal]
  - Hypertension [Fatal]
  - Hypoaesthesia [Fatal]
  - Infusion related reaction [Fatal]
  - Injury [Fatal]
  - Joint swelling [Fatal]
  - Liver injury [Fatal]
  - Malaise [Fatal]
  - Mobility decreased [Fatal]
  - Musculoskeletal stiffness [Fatal]
  - Pain [Fatal]
  - Pemphigus [Fatal]
  - Pericarditis [Fatal]
  - Psoriatic arthropathy [Fatal]
  - Rash [Fatal]
  - Rheumatic fever [Fatal]
  - Rheumatoid arthritis [Fatal]
  - Rheumatoid factor positive [Fatal]
  - Systemic lupus erythematosus [Fatal]
  - Type 2 diabetes mellitus [Fatal]
  - Treatment failure [Fatal]
  - Contraindicated product administered [Fatal]
  - Therapeutic product effect decreased [Fatal]
  - Exposure during pregnancy [Fatal]
  - Drug ineffective [Fatal]
  - Product use issue [Fatal]
  - Drug intolerance [Fatal]
  - Off label use [Fatal]
  - Maternal exposure during pregnancy [Fatal]
  - Anxiety [Fatal]
  - Asthma [Fatal]
  - Lupus vulgaris [Fatal]
  - Oedema peripheral [Fatal]
  - Pain in extremity [Fatal]
  - Product use in unapproved indication [Fatal]
  - Red blood cell sedimentation rate increased [Fatal]
  - Retinitis [Fatal]
  - Therapeutic product effect incomplete [Fatal]
  - Visual impairment [Fatal]
